FAERS Safety Report 6883248-6 (Version None)
Quarter: 2010Q3

REPORT INFORMATION
  Report Type: 
  Country: None (occurrence: None)
  Receive Date: 20100708
  Receipt Date: 20100413
  Transmission Date: 20110219
  Serious: Yes (Other)
  Sender: FDA-Public Use
  Company Number: 2010007966

PATIENT
  Age: 68 Year
  Sex: Male
  Weight: 79.4 kg

DRUGS (3)
  1. CHANTIX [Suspect]
     Indication: SMOKING CESSATION THERAPY
     Dosage: 0.5 MG, 1X/DAY, ORAL : 0.5 MG, 2X/DAY, ORAL
     Route: 048
     Dates: end: 20100118
  2. CHANTIX [Suspect]
     Indication: SMOKING CESSATION THERAPY
     Dosage: 0.5 MG, 1X/DAY, ORAL : 0.5 MG, 2X/DAY, ORAL
     Route: 048
     Dates: start: 20100113
  3. LIPITOR [Concomitant]

REACTIONS (5)
  - AGGRESSION [None]
  - DEPRESSION [None]
  - IRRITABILITY [None]
  - PERSONALITY DISORDER [None]
  - SUICIDAL IDEATION [None]
